FAERS Safety Report 14989127 (Version 3)
Quarter: 2018Q3

REPORT INFORMATION
  Report Type: Report from Study
  Country: FR (occurrence: FR)
  Receive Date: 20180608
  Receipt Date: 20180904
  Transmission Date: 20181010
  Serious: Yes (Hospitalization)
  Sender: FDA-Public Use
  Company Number: FR-JNJFOC-20171212954

PATIENT
  Age: 81 Year
  Sex: Male
  Weight: 89 kg

DRUGS (22)
  1. TEMERIT [Concomitant]
     Active Substance: NEBIVOLOL
     Route: 048
     Dates: end: 20180115
  2. ALPRAZOLAM. [Concomitant]
     Active Substance: ALPRAZOLAM
     Route: 048
  3. RIFAMPICIN [Concomitant]
     Active Substance: RIFAMPIN
     Dosage: 1500, QD
     Route: 048
     Dates: start: 20171121, end: 20171128
  4. ORBENINE [Concomitant]
     Active Substance: CLOXACILLIN SODIUM
     Route: 048
     Dates: start: 20171128, end: 20171207
  5. PANTOPRAZOLE [Concomitant]
     Active Substance: PANTOPRAZOLE
     Route: 048
     Dates: start: 20180115
  6. TEMERIT [Concomitant]
     Active Substance: NEBIVOLOL
     Route: 048
     Dates: start: 20180116
  7. LASILIX [Concomitant]
     Active Substance: FUROSEMIDE
     Route: 048
     Dates: start: 20170905, end: 20170907
  8. TAVANIC [Concomitant]
     Active Substance: LEVOFLOXACIN
     Route: 048
     Dates: start: 20171121, end: 20171128
  9. ACETYLSALICYLIC ACID [Suspect]
     Active Substance: ASPIRIN
     Indication: THROMBOSIS PROPHYLAXIS
     Route: 048
     Dates: start: 20170911, end: 20171026
  10. KARDEGIC [Concomitant]
     Active Substance: ASPIRIN DL-LYSINE
     Route: 048
     Dates: start: 201710
  11. TAHOR [Concomitant]
     Active Substance: ATORVASTATIN CALCIUM
     Route: 048
  12. LANTUS [Concomitant]
     Active Substance: INSULIN GLARGINE
     Indication: DIABETES MELLITUS
     Route: 058
  13. MAPROTILINE [Concomitant]
     Active Substance: MAPROTILINE
     Route: 048
  14. RIFAMPICIN [Concomitant]
     Active Substance: RIFAMPIN
     Route: 048
     Dates: start: 20171213, end: 20171218
  15. SERETIDE [Concomitant]
     Active Substance: FLUTICASONE PROPIONATE\SALMETEROL XINAFOATE
     Indication: CHRONIC OBSTRUCTIVE PULMONARY DISEASE
     Dosage: 1 INHALATION
     Route: 055
  16. RIVAROXABAN [Suspect]
     Active Substance: RIVAROXABAN
     Indication: AORTIC VALVE REPLACEMENT
     Route: 048
     Dates: start: 20170911, end: 20171026
  17. ACETYLSALICYLIC ACID [Suspect]
     Active Substance: ASPIRIN
     Indication: AORTIC VALVE REPLACEMENT
     Route: 048
     Dates: start: 20170911, end: 20171026
  18. KARDEGIC [Concomitant]
     Active Substance: ASPIRIN DL-LYSINE
     Route: 048
     Dates: end: 20170905
  19. LOVENOX [Concomitant]
     Active Substance: ENOXAPARIN SODIUM
     Route: 058
     Dates: start: 20180115
  20. RIVAROXABAN [Suspect]
     Active Substance: RIVAROXABAN
     Indication: THROMBOSIS PROPHYLAXIS
     Route: 048
     Dates: start: 20170911, end: 20171026
  21. KARDEGIC [Concomitant]
     Active Substance: ASPIRIN DL-LYSINE
     Route: 048
     Dates: start: 20170906, end: 20170910
  22. CIPROFLOXACIN. [Concomitant]
     Active Substance: CIPROFLOXACIN
     Route: 048
     Dates: start: 20171213, end: 20171218

REACTIONS (4)
  - Hip fracture [Recovered/Resolved]
  - Hip arthroplasty [Recovered/Resolved with Sequelae]
  - Ostectomy [Recovered/Resolved with Sequelae]
  - Sepsis [Recovered/Resolved]

NARRATIVE: CASE EVENT DATE: 20171026
